FAERS Safety Report 16127248 (Version 1)
Quarter: 2019Q1

REPORT INFORMATION
  Report Type: Spontaneous
  Country: US (occurrence: US)
  Receive Date: 20190328
  Receipt Date: 20190328
  Transmission Date: 20190418
  Serious: Yes (Hospitalization)
  Sender: FDA-Public Use
  Company Number: US-CELGENEUS-USA-20190308976

PATIENT
  Sex: Female

DRUGS (6)
  1. THALOMID [Suspect]
     Active Substance: THALIDOMIDE
     Indication: PLASMA CELL MYELOMA
     Dosage: 50 MILLIGRAM
     Route: 048
     Dates: start: 201206
  2. THALOMID [Suspect]
     Active Substance: THALIDOMIDE
     Dosage: 100-150MG
     Route: 048
     Dates: start: 201603
  3. THALOMID [Suspect]
     Active Substance: THALIDOMIDE
     Dosage: 100-150MG
     Route: 048
     Dates: start: 201406
  4. THALOMID [Suspect]
     Active Substance: THALIDOMIDE
     Dosage: 200 MILLIGRAM
     Route: 048
     Dates: start: 201709
  5. THALOMID [Suspect]
     Active Substance: THALIDOMIDE
     Dosage: 100-150MG
     Route: 048
     Dates: start: 201208
  6. THALOMID [Suspect]
     Active Substance: THALIDOMIDE
     Dosage: 100 MILLIGRAM
     Route: 048
     Dates: start: 201810

REACTIONS (2)
  - Respiratory syncytial virus infection [Unknown]
  - Corona virus infection [Unknown]
